FAERS Safety Report 4665586-0 (Version None)
Quarter: 2005Q2

REPORT INFORMATION
  Report Type: 
  Country: None (occurrence: None)
  Receive Date: 20050519
  Receipt Date: 20050510
  Transmission Date: 20051028
  Serious: Yes (Death)
  Sender: FDA-Public Use
  Company Number: FR-JNJFOC-20050502582

PATIENT
  Age: 77 Year
  Sex: Female

DRUGS (13)
  1. REMINYL [Suspect]
     Route: 049
     Dates: start: 20050210, end: 20050426
  2. REMINYL [Suspect]
     Route: 049
     Dates: start: 20050210, end: 20050426
  3. REMINYL [Suspect]
     Route: 049
     Dates: start: 20050210, end: 20050426
  4. CORDARONE [Concomitant]
     Route: 065
  5. DIGOXIN [Concomitant]
     Route: 065
  6. LEVOTHYROX [Concomitant]
     Route: 065
  7. FUROSEMIDE [Concomitant]
     Route: 065
  8. PREVISCAN [Concomitant]
     Route: 065
  9. EQUANIL [Concomitant]
     Route: 065
  10. DEROXAT [Concomitant]
     Route: 065
  11. IMOVANE [Concomitant]
     Route: 065
  12. AUGMENTIN '125' [Concomitant]
     Route: 065
  13. AUGMENTIN '125' [Concomitant]
     Route: 065

REACTIONS (8)
  - DYSPNOEA EXERTIONAL [None]
  - EXCITABILITY [None]
  - LUNG DISORDER [None]
  - OEDEMA PERIPHERAL [None]
  - PALPITATIONS [None]
  - PRURIGO [None]
  - SUDDEN DEATH [None]
  - WEIGHT INCREASED [None]
